FAERS Safety Report 6148899-5 (Version None)
Quarter: 2009Q2

REPORT INFORMATION
  Report Type: 
  Country: None (occurrence: None)
  Receive Date: 20090408
  Receipt Date: 20090331
  Transmission Date: 20091009
  Serious: Yes (Life-Threatening, Hospitalization, Other)
  Sender: FDA-Public Use
  Company Number: DE-ABBOTT-09P-062-0560260-00

PATIENT
  Sex: Male

DRUGS (3)
  1. HUMIRA [Suspect]
     Indication: CROHN'S DISEASE
     Route: 058
     Dates: start: 20070201
  2. ANTIBIOTIC [Concomitant]
     Indication: PNEUMONIA
     Route: 065
  3. BUTYLSCOPOLAMINIUMBROMID [Concomitant]
     Indication: DRUG USE FOR UNKNOWN INDICATION

REACTIONS (7)
  - CARDIAC ARREST [None]
  - CROHN'S DISEASE [None]
  - CYANOSIS [None]
  - LOSS OF CONSCIOUSNESS [None]
  - NASOPHARYNGITIS [None]
  - PNEUMONIA [None]
  - VENTRICULAR FIBRILLATION [None]
